FAERS Safety Report 10332596 (Version 3)
Quarter: 2014Q3

REPORT INFORMATION
  Report Type: Spontaneous
  Country: JP (occurrence: JP)
  Receive Date: 20140722
  Receipt Date: 20140924
  Transmission Date: 20150326
  Serious: Yes (Life-Threatening, Hospitalization)
  Sender: FDA-Public Use
  Company Number: JP-GLAXOSMITHKLINE-B1003772A

PATIENT
  Sex: Female
  Weight: 52 kg

DRUGS (4)
  1. LYRICA [Suspect]
     Active Substance: PREGABALIN
     Indication: PAIN
     Dosage: 75MG PER DAY
     Route: 048
     Dates: start: 20140524, end: 20140531
  2. LOXONIN [Concomitant]
     Active Substance: LOXOPROFEN SODIUM
     Indication: PAIN
     Dosage: 60MG THREE TIMES PER DAY
     Route: 048
     Dates: start: 20140529, end: 20140531
  3. ACICLOVIR [Suspect]
     Active Substance: ACYCLOVIR
     Indication: HERPES ZOSTER
     Dosage: 250MG PER DAY
     Route: 042
     Dates: start: 20140522, end: 20140529
  4. VALTREX [Suspect]
     Active Substance: VALACYCLOVIR HYDROCHLORIDE
     Indication: HERPES ZOSTER
     Dosage: 1000MG THREE TIMES PER DAY
     Route: 048
     Dates: start: 20140529, end: 20140531

REACTIONS (11)
  - Tubulointerstitial nephritis [Unknown]
  - Dysarthria [Recovered/Resolved]
  - Toxic encephalopathy [Unknown]
  - Nervous system disorder [Recovered/Resolved]
  - Altered state of consciousness [Recovered/Resolved]
  - Urine output decreased [Unknown]
  - Renal failure acute [Unknown]
  - Convulsion [Recovering/Resolving]
  - Diabetes mellitus [Unknown]
  - Tubulointerstitial nephritis [Recovering/Resolving]
  - Blood glucose increased [Unknown]
